FAERS Safety Report 13288462 (Version 6)
Quarter: 2019Q4

REPORT INFORMATION
  Report Type: Report from Study
  Country: US (occurrence: US)
  Receive Date: 20170302
  Receipt Date: 20191023
  Transmission Date: 20200122
  Serious: Yes (Hospitalization)
  Sender: FDA-Public Use
  Company Number: US-ACTELION-A-US2014-108523

PATIENT
  Age: 53 Year
  Sex: Female
  Weight: 56.69 kg

DRUGS (3)
  1. TRACLEER [Suspect]
     Active Substance: BOSENTAN
     Indication: PULMONARY ARTERIAL HYPERTENSION
     Dosage: 125 MG, BID
     Route: 048
  2. ASPIRIN. [Concomitant]
     Active Substance: ASPIRIN
  3. TRACLEER [Suspect]
     Active Substance: BOSENTAN
     Dosage: UNK
     Route: 048

REACTIONS (17)
  - Pulmonary arterial hypertension [Unknown]
  - Chest pain [Unknown]
  - Systemic lupus erythematosus [Unknown]
  - Tremor [Unknown]
  - Internal haemorrhage [Unknown]
  - Transfusion [Unknown]
  - Abdominal distension [Unknown]
  - Abdominal pain [Unknown]
  - Dyspnoea exertional [Unknown]
  - Palpitations [Unknown]
  - Dizziness [Unknown]
  - Emergency care [Unknown]
  - Chest discomfort [Unknown]
  - Staphylococcal infection [Unknown]
  - Condition aggravated [Unknown]
  - Dyspnoea [Unknown]
  - Malaise [Unknown]

NARRATIVE: CASE EVENT DATE: 201909
